FAERS Safety Report 10143175 (Version 1)
Quarter: 2014Q2

REPORT INFORMATION
  Report Type: Spontaneous
  Country: US (occurrence: US)
  Receive Date: 20140430
  Receipt Date: 20140430
  Transmission Date: 20141212
  Serious: Yes (Other)
  Sender: FDA-Public Use
  Company Number: US-BAYER-2014-060417

PATIENT
  Age: 22 Year
  Sex: Female

DRUGS (1)
  1. MIRENA [Suspect]
     Indication: CONTRACEPTION
     Dosage: 20 MCG/24HR, CONT
     Route: 015
     Dates: start: 200604, end: 20081121

REACTIONS (7)
  - Device dislocation [None]
  - Device issue [None]
  - Uterine fibrosis [Not Recovered/Not Resolved]
  - Device difficult to use [None]
  - Complication of pregnancy [None]
  - Foetal death [None]
  - High risk pregnancy [None]
